FAERS Safety Report 13918917 (Version 1)
Quarter: 2017Q3

REPORT INFORMATION
  Report Type: Spontaneous
  Country: US (occurrence: None)
  Receive Date: 20170828
  Receipt Date: 20170828
  Transmission Date: 20171127
  Serious: Yes (Hospitalization)
  Sender: FDA-Public Use
  Company Number: None

PATIENT
  Age: 65 Year
  Sex: Female

DRUGS (19)
  1. COLACE [Concomitant]
     Active Substance: DOCUSATE SODIUM
  2. SENNA [Concomitant]
     Active Substance: SENNA LEAF\SENNOSIDES\SENNOSIDES A AND B
  3. AFINITOR [Suspect]
     Active Substance: EVEROLIMUS
     Indication: NEOPLASM MALIGNANT
     Route: 048
     Dates: start: 20170603
  4. HALOPERIDOL. [Concomitant]
     Active Substance: HALOPERIDOL
  5. OXYCODONE [Concomitant]
     Active Substance: OXYCODONE
  6. LIALDA [Concomitant]
     Active Substance: MESALAMINE
  7. SUPPOSITORY [Concomitant]
  8. OMEPRAZOLE. [Concomitant]
     Active Substance: OMEPRAZOLE
  9. ROSUVASTATIN. [Concomitant]
     Active Substance: ROSUVASTATIN
  10. TRAMADOL. [Concomitant]
     Active Substance: TRAMADOL
  11. MESALAMINE. [Concomitant]
     Active Substance: MESALAMINE
  12. SERTRALINE [Concomitant]
     Active Substance: SERTRALINE HYDROCHLORIDE
  13. EXEMESTANE. [Concomitant]
     Active Substance: EXEMESTANE
  14. METHADONE [Concomitant]
     Active Substance: METHADONE HYDROCHLORIDE
  15. GLYCERIN. [Concomitant]
     Active Substance: GLYCERIN
  16. DEXAMETHASONE. [Concomitant]
     Active Substance: DEXAMETHASONE
  17. GABAPENTIN. [Concomitant]
     Active Substance: GABAPENTIN
  18. VITAMIN D [Concomitant]
     Active Substance: CHOLECALCIFEROL
  19. LORAZEPAM. [Concomitant]
     Active Substance: LORAZEPAM

REACTIONS (1)
  - Hospitalisation [None]

NARRATIVE: CASE EVENT DATE: 201708
